FAERS Safety Report 5361742-7 (Version None)
Quarter: 2007Q2

REPORT INFORMATION
  Report Type: 
  Country: None (occurrence: None)
  Receive Date: 20070615
  Receipt Date: 20070607
  Transmission Date: 20071010
  Serious: Yes (Other)
  Sender: FDA-Public Use
  Company Number: JPI-P-000990

PATIENT
  Age: 54 Year
  Sex: Female
  Weight: 46.7205 kg

DRUGS (21)
  1. XYREM [Suspect]
     Indication: SLEEP DISORDER
     Dosage: SEE IMAGE
     Route: 048
     Dates: start: 20070215, end: 20070314
  2. XYREM [Suspect]
     Indication: SOMNOLENCE
     Dosage: SEE IMAGE
     Route: 048
     Dates: start: 20070215, end: 20070314
  3. XYREM [Suspect]
     Indication: SLEEP DISORDER
     Dosage: SEE IMAGE
     Route: 048
     Dates: start: 20070315, end: 20070401
  4. XYREM [Suspect]
     Indication: SOMNOLENCE
     Dosage: SEE IMAGE
     Route: 048
     Dates: start: 20070315, end: 20070401
  5. XYREM [Suspect]
     Indication: SLEEP DISORDER
     Dosage: SEE IMAGE
     Route: 048
     Dates: start: 20070101, end: 20070601
  6. XYREM [Suspect]
     Indication: SOMNOLENCE
     Dosage: SEE IMAGE
     Route: 048
     Dates: start: 20070101, end: 20070601
  7. XYREM [Suspect]
     Indication: SLEEP DISORDER
     Dosage: SEE IMAGE
     Route: 048
     Dates: start: 20070401
  8. XYREM [Suspect]
     Indication: SOMNOLENCE
     Dosage: SEE IMAGE
     Route: 048
     Dates: start: 20070401
  9. XYREM [Suspect]
     Indication: SLEEP DISORDER
     Dosage: SEE IMAGE
     Route: 048
     Dates: start: 20070401
  10. XYREM [Suspect]
     Indication: SOMNOLENCE
     Dosage: SEE IMAGE
     Route: 048
     Dates: start: 20070401
  11. XYREM [Suspect]
     Indication: SLEEP DISORDER
     Dosage: SEE IMAGE
     Route: 048
     Dates: start: 20070402
  12. XYREM [Suspect]
     Indication: SOMNOLENCE
     Dosage: SEE IMAGE
     Route: 048
     Dates: start: 20070402
  13. XYREM [Suspect]
     Indication: SLEEP DISORDER
     Dosage: SEE IMAGE
     Route: 048
     Dates: start: 20070402
  14. XYREM [Suspect]
     Indication: SOMNOLENCE
     Dosage: SEE IMAGE
     Route: 048
     Dates: start: 20070402
  15. XYREM [Suspect]
     Indication: SLEEP DISORDER
     Dosage: SEE IMAGE
     Route: 048
     Dates: start: 20070601
  16. XYREM [Suspect]
     Indication: SOMNOLENCE
     Dosage: SEE IMAGE
     Route: 048
     Dates: start: 20070601
  17. KLONOPIN [Suspect]
     Indication: INSOMNIA
     Dosage: 0.5 TO 1 MILLIGRAMS (1 IN 1 D), ORAL
     Route: 048
     Dates: start: 20070501
  18. GEODON [Concomitant]
  19. SYNTHROID [Concomitant]
  20. WELLBUTRIN [Concomitant]
  21. ADDERALL (OBETROL /01345401/) [Concomitant]

REACTIONS (11)
  - ABNORMAL SLEEP-RELATED EVENT [None]
  - AGGRESSION [None]
  - CONVULSION [None]
  - FALL [None]
  - FATIGUE [None]
  - GRUNTING [None]
  - INSOMNIA [None]
  - NIGHT SWEATS [None]
  - SLEEP DISORDER [None]
  - SLEEP WALKING [None]
  - SYNCOPE [None]
